FAERS Safety Report 24059567 (Version 1)
Quarter: 2024Q3

REPORT INFORMATION
  Report Type: Spontaneous
  Country: DE (occurrence: DE)
  Receive Date: 20240708
  Receipt Date: 20240708
  Transmission Date: 20241016
  Serious: Yes (Other)
  Sender: ABBVIE
  Company Number: DE-JNJFOC-20240704074

PATIENT
  Age: 23 Year
  Sex: Female

DRUGS (1)
  1. IMBRUVICA [Suspect]
     Active Substance: IBRUTINIB
     Indication: B-cell type acute leukaemia
     Route: 048

REACTIONS (3)
  - Cytokine release syndrome [Unknown]
  - Off label use [Unknown]
  - Immune effector cell-associated neurotoxicity syndrome [Unknown]
